FAERS Safety Report 11659913 (Version 2)
Quarter: 2015Q4

REPORT INFORMATION
  Report Type: Spontaneous
  Country: FR (occurrence: FR)
  Receive Date: 20151026
  Receipt Date: 20151103
  Transmission Date: 20160304
  Serious: Yes (Hospitalization)
  Sender: FDA-Public Use
  Company Number: FR-INDIVIOR-INDV-084557-2015

PATIENT
  Age: 58 Year
  Sex: Male

DRUGS (1)
  1. SUBUTEX [Suspect]
     Active Substance: BUPRENORPHINE HYDROCHLORIDE
     Indication: PRODUCT USED FOR UNKNOWN INDICATION
     Dosage: UNK
     Route: 060
     Dates: start: 20150910, end: 20150910

REACTIONS (5)
  - Miosis [Unknown]
  - Drug abuse [Recovered/Resolved]
  - Drug dependence [Unknown]
  - Lung disorder [Unknown]
  - Coma [Recovered/Resolved]

NARRATIVE: CASE EVENT DATE: 20150910
